FAERS Safety Report 12190248 (Version 1)
Quarter: 2016Q1

REPORT INFORMATION
  Report Type: Spontaneous
  Country: None (occurrence: None)
  Receive Date: 20160317
  Receipt Date: 20160317
  Transmission Date: 20160526
  Serious: Yes (Other)
  Sender: FDA-Public Use
  Company Number: None

PATIENT
  Age: 50 Year
  Sex: Female
  Weight: 68.04 kg

DRUGS (1)
  1. SEPTOCAINE [Suspect]
     Active Substance: ARTICAINE HYDROCHLORIDE\EPINEPHRINE BITARTRATE
     Indication: LOCAL ANAESTHESIA
     Dates: start: 20160315, end: 20160315

REACTIONS (13)
  - Tinnitus [None]
  - Fatigue [None]
  - Tremor [None]
  - Mental impairment [None]
  - Hypersomnia [None]
  - Memory impairment [None]
  - Palpitations [None]
  - Diarrhoea [None]
  - Dizziness [None]
  - Anxiety [None]
  - Disturbance in attention [None]
  - Pain in jaw [None]
  - Swelling [None]

NARRATIVE: CASE EVENT DATE: 20160315
